FAERS Safety Report 8483488-9 (Version None)
Quarter: 2012Q3

REPORT INFORMATION
  Report Type: 
  Country: None (occurrence: None)
  Receive Date: 20120702
  Receipt Date: 20120626
  Transmission Date: 20120928
  Serious: Yes (Hospitalization, Other)
  Sender: FDA-Public Use
  Company Number: PHHY2012IN055293

PATIENT
  Age: 17 Year
  Sex: Male

DRUGS (2)
  1. CHLOROQUINE [Concomitant]
  2. IBUPROFEN [Suspect]
     Indication: PYREXIA
     Route: 048

REACTIONS (10)
  - STEVENS-JOHNSON SYNDROME [None]
  - ORAL MUCOSA EROSION [None]
  - POST INFLAMMATORY PIGMENTATION CHANGE [None]
  - ERYTHEMA MULTIFORME [None]
  - SKIN LESION [None]
  - TACHYCARDIA [None]
  - MALAISE [None]
  - PURPURA [None]
  - CONJUNCTIVAL EROSION [None]
  - PYREXIA [None]
